FAERS Safety Report 4350503-3 (Version None)
Quarter: 2004Q2

REPORT INFORMATION
  Report Type: 
  Country: None (occurrence: None)
  Receive Date: 20040429
  Receipt Date: 20040429
  Transmission Date: 20050107
  Serious: Yes (Life-Threatening, Hospitalization)
  Sender: FDA-Public Use
  Company Number: None

PATIENT
  Age: 19 Year
  Sex: Male
  Weight: 82.1 kg

DRUGS (7)
  1. ARIPIPRAZOLE 15 MG - 1/2 TAB- BRISTOL-MYERS SQUIBB [Suspect]
     Indication: SCHIZOPHRENIA
     Dosage: 15 MG - 1/2 TAB- QH ORAL
     Route: 048
     Dates: start: 20040323, end: 20040324
  2. ARIPIPRAZOLE 15 MG - 1 TAB- BRISTOL-MYERS SQUIBB [Suspect]
     Dosage: 15 MG  1 TAB QHS ORAL
     Route: 048
     Dates: start: 20040325, end: 20040405
  3. RISPERIDONE [Concomitant]
  4. OLANZAPINE [Concomitant]
  5. LITHIUM CARBONATE [Concomitant]
  6. ESKALITH [Concomitant]
  7. BENZTROPINE MESYLATE [Concomitant]

REACTIONS (25)
  - AGITATION [None]
  - BLADDER CANDIDIASIS [None]
  - BLOOD CREATINE PHOSPHOKINASE INCREASED [None]
  - BLOOD PRESSURE SYSTOLIC INCREASED [None]
  - CATATONIA [None]
  - COMA [None]
  - DEHYDRATION [None]
  - DEPRESSED LEVEL OF CONSCIOUSNESS [None]
  - DROOLING [None]
  - DYSTONIA [None]
  - HEART RATE INCREASED [None]
  - METABOLIC ENCEPHALOPATHY [None]
  - MUSCLE RIGIDITY [None]
  - MYDRIASIS [None]
  - NEUROLEPTIC MALIGNANT SYNDROME [None]
  - PNEUMONIA ASPIRATION [None]
  - PYREXIA [None]
  - RESPIRATORY FAILURE [None]
  - RESPIRATORY RATE INCREASED [None]
  - SKIN WARM [None]
  - SOCIAL AVOIDANT BEHAVIOUR [None]
  - STARING [None]
  - TACHYCARDIA [None]
  - URINARY INCONTINENCE [None]
  - WHITE BLOOD CELL COUNT INCREASED [None]
